FAERS Safety Report 13128304 (Version 2)
Quarter: 2017Q1

REPORT INFORMATION
  Report Type: Report from Study
  Country: US (occurrence: US)
  Receive Date: 20170118
  Receipt Date: 20170201
  Transmission Date: 20170428
  Serious: Yes (Other)
  Sender: FDA-Public Use
  Company Number: US-GILEAD-2017-0253545

PATIENT
  Age: 65 Year
  Sex: Male

DRUGS (1)
  1. IDELALISIB [Suspect]
     Active Substance: IDELALISIB
     Indication: CHRONIC LYMPHOCYTIC LEUKAEMIA
     Dosage: 150 MG, BID
     Route: 048
     Dates: start: 20161015

REACTIONS (6)
  - Dental implantation [Not Recovered/Not Resolved]
  - Pulpitis dental [Unknown]
  - Gingival ulceration [Unknown]
  - Oral infection [Unknown]
  - Tooth extraction [Not Recovered/Not Resolved]
  - Gingival pain [Unknown]

NARRATIVE: CASE EVENT DATE: 201701
